FAERS Safety Report 8004990-X (Version None)
Quarter: 2011Q4

REPORT INFORMATION
  Report Type: 
  Country: None (occurrence: None)
  Receive Date: 20111223
  Receipt Date: 20111221
  Transmission Date: 20120403
  Serious: Yes (Death)
  Sender: FDA-Public Use
  Company Number: JM-B.I. PHARMACEUTICALS,INC./RIDGEFIELD-2011-CN-02003CN

PATIENT
  Age: 63 Year
  Sex: Male

DRUGS (6)
  1. SPIRIVA [Suspect]
     Indication: CHRONIC OBSTRUCTIVE PULMONARY DISEASE
  2. METFORMIN HCL [Concomitant]
  3. INSULIN [Concomitant]
     Indication: DIABETES MELLITUS
  4. FLUTICASONE PROPIONATE/SALMETEROL [Concomitant]
     Indication: CHRONIC OBSTRUCTIVE PULMONARY DISEASE
  5. LOSARTAN POTASSIUM [Concomitant]
  6. HYDROCHLOROTHIAZIDE [Concomitant]
     Indication: HYPERTENSION

REACTIONS (1)
  - LUNG INFECTION [None]
